FAERS Safety Report 9516074 (Version 1)
Quarter: 2013Q1

REPORT INFORMATION
  Report Type: Spontaneous
  Country: US (occurrence: None)
  Receive Date: 20130305
  Receipt Date: 20130305
  Transmission Date: 20140127
  Serious: Yes (Other)
  Sender: FDA-Public Use
  Company Number: 163-21880-12081415

PATIENT
  Age: 65 Year
  Sex: Female

DRUGS (7)
  1. REVLIMID (LENALIDOMIDE) (15 MILLIGRAM, CAPSULES) [Suspect]
     Indication: PLASMA CELL MYELOMA
     Dosage: 15 MG,  21 IN 28 D,  PO
     Route: 048
     Dates: start: 20120111, end: 20120710
  2. PACKED RED BLOOD CELLS TRANSFUSION (BLOOD TRANSFUSION, AUXILIARY PRODUCTS) (UNKNOWN) [Concomitant]
  3. ASA (ACETYLSALICYLIC ACID) (UNKNOWN) [Concomitant]
  4. MS CONTIN (MORPHINE SULFATE) (TABLETS) [Concomitant]
  5. AMLODIPINE (AMLODIPINE) (TABLETS) [Concomitant]
  6. OXYCODONE (OXYCODONE) (TABLETS) [Concomitant]
  7. GLYCOLAX (MACROGOL) (TABLETS) [Concomitant]

REACTIONS (2)
  - White blood cell count decreased [None]
  - Platelet count decreased [None]
